FAERS Safety Report 12104821 (Version 1)
Quarter: 2016Q1

REPORT INFORMATION
  Report Type: Spontaneous
  Country: US (occurrence: US)
  Receive Date: 20160223
  Receipt Date: 20160223
  Transmission Date: 20160526
  Serious: No
  Sender: FDA-Public Use
  Company Number: US-PFIZER INC-2016085395

PATIENT
  Sex: Male

DRUGS (1)
  1. LYRICA [Suspect]
     Active Substance: PREGABALIN
     Dosage: UNK

REACTIONS (6)
  - Swelling [Unknown]
  - Vision blurred [Unknown]
  - Swelling face [Unknown]
  - Swollen tongue [Unknown]
  - Eye swelling [Unknown]
  - Lip swelling [Unknown]
